FAERS Safety Report 10901266 (Version 1)
Quarter: 2015Q1

REPORT INFORMATION
  Report Type: Other
  Country: FR (occurrence: FR)
  Receive Date: 20150310
  Receipt Date: 20150310
  Transmission Date: 20150721
  Serious: Yes (Hospitalization)
  Sender: FDA-Public Use
  Company Number: FR-MYLANLABS-2015M1005967

PATIENT

DRUGS (9)
  1. TEVAGRASTIM [Suspect]
     Active Substance: FILGRASTIM
     Dosage: 30 MG, 5XD
     Route: 058
     Dates: start: 20141219, end: 20141223
  2. CISPLATINE MYLAN 50 MG/100 ML, SOLUTION POUR PERFUSION EN FLACON [Suspect]
     Active Substance: CISPLATIN
     Dosage: 100 MG/M2, UNK
     Route: 042
     Dates: start: 20150108, end: 20150108
  3. EMEND [Suspect]
     Active Substance: APREPITANT
     Indication: PRODUCT USED FOR UNKNOWN INDICATION
     Dosage: UNK
     Route: 048
     Dates: start: 20141124, end: 20141124
  4. TEVAGRASTIM [Suspect]
     Active Substance: FILGRASTIM
     Indication: PRODUCT USED FOR UNKNOWN INDICATION
     Dosage: 30 MG, 5XD
     Route: 058
     Dates: start: 20141128, end: 20141202
  5. CISPLATINE MYLAN 50 MG/100 ML, SOLUTION POUR PERFUSION EN FLACON [Suspect]
     Active Substance: CISPLATIN
     Indication: PRODUCT USED FOR UNKNOWN INDICATION
     Dosage: 100 MG/M2, UNK
     Route: 042
     Dates: start: 20141124, end: 20141124
  6. EMEND [Suspect]
     Active Substance: APREPITANT
     Dosage: UNK
     Route: 048
     Dates: start: 20141215, end: 20141215
  7. TEVAGRASTIM [Suspect]
     Active Substance: FILGRASTIM
     Dosage: 30 MG, 5XD
     Route: 058
     Dates: start: 20150112, end: 20150116
  8. CISPLATINE MYLAN 50 MG/100 ML, SOLUTION POUR PERFUSION EN FLACON [Suspect]
     Active Substance: CISPLATIN
     Dosage: 100 MG/M2, UNK
     Route: 042
     Dates: start: 20141215, end: 20141215
  9. EMEND [Suspect]
     Active Substance: APREPITANT
     Dosage: UNK
     Route: 048
     Dates: start: 20150108, end: 20150108

REACTIONS (1)
  - Vasculitis [Not Recovered/Not Resolved]

NARRATIVE: CASE EVENT DATE: 20150131
